FAERS Safety Report 8512806-8 (Version None)
Quarter: 2012Q3

REPORT INFORMATION
  Report Type: 
  Country: None (occurrence: None)
  Receive Date: 20120716
  Receipt Date: 20120706
  Transmission Date: 20120928
  Serious: Yes (Hospitalization, Disabling)
  Sender: FDA-Public Use
  Company Number: JP-PFIZER INC-2012106095

PATIENT
  Age: 82 Year
  Sex: Male
  Weight: 61 kg

DRUGS (7)
  1. LANSOPRAZOLE [Suspect]
     Dosage: UNK
     Route: 048
  2. LYRICA [Suspect]
     Dosage: UNK
     Route: 048
  3. CELEBREX [Suspect]
     Indication: INTERCOSTAL NEURALGIA
     Dosage: 200 MG, UNK/DAY
     Route: 048
     Dates: end: 20120312
  4. QVAR 40 [Concomitant]
     Dosage: UNK
  5. TRAMADOL HYDROCHLORIDE AND ACETAMINOPHEN [Concomitant]
     Dosage: UNK
     Route: 048
  6. LENDORMIN [Concomitant]
     Dosage: UNK
     Route: 048
  7. LANIRAPID [Suspect]
     Dosage: UNK
     Route: 048

REACTIONS (1)
  - LUNG DISORDER [None]
